FAERS Safety Report 7277341-6 (Version None)
Quarter: 2011Q1

REPORT INFORMATION
  Report Type: 
  Country: None (occurrence: None)
  Receive Date: 20110203
  Receipt Date: 20110203
  Transmission Date: 20110831
  Serious: Yes (Disabling)
  Sender: FDA-Public Use
  Company Number: None

PATIENT
  Sex: Female

DRUGS (1)
  1. DEXAMETHASONE [Suspect]
     Indication: ARTHRITIS
     Dosage: 4MG/ML. ONCE INJECTION
     Route: 058
     Dates: start: 20101004

REACTIONS (5)
  - INJECTION SITE WARMTH [None]
  - INJECTION SITE OEDEMA [None]
  - INJECTION SITE PAIN [None]
  - INFECTION [None]
  - INJECTION SITE ERYTHEMA [None]
